FAERS Safety Report 12477443 (Version 4)
Quarter: 2017Q1

REPORT INFORMATION
  Report Type: Spontaneous
  Country: JP (occurrence: JP)
  Receive Date: 20160617
  Receipt Date: 20170202
  Transmission Date: 20170428
  Serious: Yes (Other)
  Sender: FDA-Public Use
  Company Number: JP-GILEAD-2016-0217809

PATIENT
  Age: 78 Year
  Sex: Female
  Weight: 52 kg

DRUGS (8)
  1. URSO [Concomitant]
     Active Substance: URSODIOL
     Dosage: 600 MG, UNK
     Dates: start: 20160301, end: 20160428
  2. URSO [Concomitant]
     Active Substance: URSODIOL
     Dosage: 300 MG, UNK
     Dates: start: 20160429
  3. HARVONI [Suspect]
     Active Substance: LEDIPASVIR\SOFOSBUVIR
     Indication: CHRONIC HEPATITIS C
     Dosage: 1 DF, UNK
     Route: 048
     Dates: start: 20160308, end: 20160531
  4. ALDACTONE [Concomitant]
     Active Substance: SPIRONOLACTONE
     Indication: HYPERTENSION
     Dosage: 25 MG, UNK
     Dates: start: 20151209, end: 20160510
  5. IRBETAN [Concomitant]
     Active Substance: IRBESARTAN
     Indication: HYPERTENSION
     Dosage: 200 MG, UNK
     Dates: start: 20151203
  6. URSO [Concomitant]
     Active Substance: URSODIOL
     Indication: CHRONIC HEPATITIS C
     Dosage: 900 MG, UNK
     Dates: start: 20151222, end: 20160229
  7. AMLODIN [Concomitant]
     Active Substance: AMLODIPINE BESYLATE
     Indication: HYPERTENSION
     Dosage: 5 MG, UNK
     Dates: start: 20151209, end: 20160426
  8. AMLODIN [Concomitant]
     Active Substance: AMLODIPINE BESYLATE
     Dosage: 2.5 MG, UNK
     Dates: start: 20160427

REACTIONS (2)
  - Renal disorder [Recovered/Resolved]
  - Influenza [Recovered/Resolved]

NARRATIVE: CASE EVENT DATE: 201603
